FAERS Safety Report 20615759 (Version 2)
Quarter: 2022Q1

REPORT INFORMATION
  Report Type: Spontaneous
  Country: US (occurrence: US)
  Receive Date: 20220321
  Receipt Date: 20220323
  Transmission Date: 20220424
  Serious: No
  Sender: FDA-Public Use
  Company Number: US-NOVARTISTESTPH-NVSC2022US026702

PATIENT
  Age: 56 Year
  Sex: Male

DRUGS (4)
  1. XOLAIR [Suspect]
     Active Substance: OMALIZUMAB
     Indication: Idiopathic urticaria
     Dosage: 300 MG,EVERY 4 WEEKS
     Route: 058
     Dates: start: 20151223
  2. XOLAIR [Suspect]
     Active Substance: OMALIZUMAB
     Dosage: 250 MG, , IN LATE //2017 OR EARLY //2018 (EXACT START DATE UNKNOWN BY PATIENT)
     Route: 058
  3. METFORMIN [Suspect]
     Active Substance: METFORMIN HYDROCHLORIDE
     Indication: Blood glucose fluctuation
     Dosage: UNK
     Route: 065
  4. SEMAGLUTIDE [Suspect]
     Active Substance: SEMAGLUTIDE
     Indication: Blood glucose fluctuation
     Dosage: UNK
     Route: 065
     Dates: start: 202112

REACTIONS (2)
  - Weight decreased [Recovered/Resolved]
  - Off label use [Unknown]

NARRATIVE: CASE EVENT DATE: 20210901
